FAERS Safety Report 24917532 (Version 1)
Quarter: 2025Q1

REPORT INFORMATION
  Report Type: Spontaneous
  Country: FR (occurrence: FR)
  Receive Date: 20250203
  Receipt Date: 20250203
  Transmission Date: 20250408
  Serious: Yes (Life-Threatening, Hospitalization)
  Sender: MYLAN
  Company Number: None

PATIENT
  Age: 55 Year
  Sex: Male

DRUGS (2)
  1. CLOZAPINE [Interacting]
     Active Substance: CLOZAPINE
     Indication: Agitation
     Dosage: 1 DOSAGE FORM, BID (1 MORNING (8 A.M.) AND EVENING (8 P.M.)  )
     Route: 065
     Dates: start: 20241227
  2. VALIUM [Interacting]
     Active Substance: DIAZEPAM
     Indication: Agitation
     Dosage: 1 DOSAGE FORM, BID (1 MORNING AND EVENING) (SCORED TABLET  )
     Route: 065
     Dates: start: 20241226

REACTIONS (2)
  - Respiratory distress [Recovered/Resolved]
  - Drug interaction [Unknown]

NARRATIVE: CASE EVENT DATE: 20241230
